FAERS Safety Report 5593246-0 (Version None)
Quarter: 2008Q1

REPORT INFORMATION
  Report Type: 
  Country: None (occurrence: None)
  Receive Date: 20080114
  Receipt Date: 20080102
  Transmission Date: 20080703
  Serious: Yes (Other)
  Sender: FDA-Public Use
  Company Number: 08-000015

PATIENT
  Sex: Male
  Weight: 2 kg

DRUGS (2)
  1. ERYC [Suspect]
  2. BETAMETHASONE [Suspect]

REACTIONS (8)
  - BREECH PRESENTATION [None]
  - CAESAREAN SECTION [None]
  - DRUG EXPOSURE DURING PREGNANCY [None]
  - FEEDING DISORDER NEONATAL [None]
  - JAUNDICE NEONATAL [None]
  - OLIGOHYDRAMNIOS [None]
  - PREMATURE BABY [None]
  - UMBILICAL CORD PROLAPSE [None]
